FAERS Safety Report 9764258 (Version 1)
Quarter: 2013Q4

REPORT INFORMATION
  Report Type: Report from Study
  Country: ES (occurrence: ES)
  Receive Date: 20131216
  Receipt Date: 20131216
  Transmission Date: 20140711
  Serious: Yes (Other)
  Sender: FDA-Public Use
  Company Number: ES-ROCHE-1318281

PATIENT
  Sex: 0

DRUGS (2)
  1. TRASTUZUMAB [Suspect]
     Indication: BREAST CANCER METASTATIC
     Route: 065
  2. LAPATINIB [Suspect]
     Indication: BREAST CANCER METASTATIC
     Route: 065

REACTIONS (5)
  - Gastrointestinal toxicity [Unknown]
  - Diarrhoea [Unknown]
  - Vomiting [Unknown]
  - Hepatotoxicity [Unknown]
  - Skin lesion [Unknown]
